FAERS Safety Report 10220570 (Version 1)
Quarter: 2014Q2

REPORT INFORMATION
  Report Type: Spontaneous
  Country: NL (occurrence: NL)
  Receive Date: 20140606
  Receipt Date: 20140606
  Transmission Date: 20141212
  Serious: Yes (Other)
  Sender: FDA-Public Use
  Company Number: NL-AMGEN INC.-NLDSP2014041606

PATIENT
  Age: 66 Year
  Sex: Female

DRUGS (1)
  1. NEULASTA [Suspect]
     Indication: PRODUCT USED FOR UNKNOWN INDICATION
     Dosage: 6 MG, 1Q3W
     Route: 058
     Dates: start: 20140326

REACTIONS (1)
  - Pneumonia [Unknown]
